FAERS Safety Report 25161614 (Version 2)
Quarter: 2025Q2

REPORT INFORMATION
  Report Type: Spontaneous
  Country: US (occurrence: US)
  Receive Date: 20250404
  Receipt Date: 20250424
  Transmission Date: 20250716
  Serious: No
  Sender: JOHNSON AND JOHNSON
  Company Number: US-JNJFOC-20250363391

PATIENT
  Sex: Male

DRUGS (3)
  1. LAZCLUZE [Suspect]
     Active Substance: LAZERTINIB
     Indication: Lung neoplasm malignant
  2. LAZCLUZE [Suspect]
     Active Substance: LAZERTINIB
     Route: 048
  3. RYBREVANT [Suspect]
     Active Substance: AMIVANTAMAB-VMJW
     Indication: Lung neoplasm malignant

REACTIONS (1)
  - Intentional product misuse to child [Unknown]

NARRATIVE: CASE EVENT DATE: 20250314
